FAERS Safety Report 18745716 (Version 6)
Quarter: 2022Q2

REPORT INFORMATION
  Report Type: Spontaneous
  Country: US (occurrence: US)
  Receive Date: 20210115
  Receipt Date: 20220411
  Transmission Date: 20220720
  Serious: No
  Sender: FDA-Public Use
  Company Number: US-GLAXOSMITHKLINE-US2021AMR002845

PATIENT
  Age: 77 Year
  Sex: Female

DRUGS (8)
  1. ZEJULA [Suspect]
     Active Substance: NIRAPARIB
     Indication: Ovarian cancer
     Dosage: 200 MG, QD
     Route: 048
     Dates: start: 20201203
  2. ZEJULA [Suspect]
     Active Substance: NIRAPARIB
     Dosage: 200 MG, QD (200 MG (2 - 100MG CAPSULES))
  3. ZEJULA [Suspect]
     Active Substance: NIRAPARIB
     Dosage: 100 MG (IF NEEDED)
  4. ZEJULA [Suspect]
     Active Substance: NIRAPARIB
     Dosage: 200 MG, QD
     Dates: start: 2021
  5. VITAMIN C [Concomitant]
     Active Substance: ASCORBIC ACID
     Indication: Product used for unknown indication
     Dosage: UNK
  6. GABAPENTIN [Concomitant]
     Active Substance: GABAPENTIN
     Indication: Product used for unknown indication
     Dosage: UNK
  7. CALCIUM [Concomitant]
     Active Substance: CALCIUM
     Indication: Product used for unknown indication
     Dosage: UNK
  8. ASPIRIN [Concomitant]
     Active Substance: ASPIRIN
     Indication: Product used for unknown indication
     Dosage: UNK

REACTIONS (10)
  - Nausea [Recovered/Resolved]
  - Dizziness [Not Recovered/Not Resolved]
  - Palpitations [Unknown]
  - Abdominal discomfort [Unknown]
  - Blood pressure increased [Unknown]
  - Fatigue [Not Recovered/Not Resolved]
  - Pain [Unknown]
  - Loss of personal independence in daily activities [Unknown]
  - Coronavirus infection [Recovered/Resolved]
  - Product dose omission issue [Unknown]

NARRATIVE: CASE EVENT DATE: 20211201
